FAERS Safety Report 7674636-9 (Version None)
Quarter: 2011Q3

REPORT INFORMATION
  Report Type: 
  Country: None (occurrence: None)
  Receive Date: 20110810
  Receipt Date: 20110801
  Transmission Date: 20111222
  Serious: Yes (Other)
  Sender: FDA-Public Use
  Company Number: US-ROCHE-794234

PATIENT
  Sex: Female

DRUGS (1)
  1. ACCUTANE [Suspect]
     Route: 065
     Dates: start: 19900101, end: 19901201

REACTIONS (1)
  - ENTEROCOLITIS BACTERIAL [None]
